FAERS Safety Report 13351589 (Version 4)
Quarter: 2018Q1

REPORT INFORMATION
  Report Type: Report from Study
  Country: US (occurrence: US)
  Receive Date: 20170320
  Receipt Date: 20180131
  Transmission Date: 20180508
  Serious: Yes (Hospitalization)
  Sender: FDA-Public Use
  Company Number: US-AMGEN-USACT2017041624

PATIENT
  Age: 60 Year
  Sex: Male
  Weight: 62.7 kg

DRUGS (2)
  1. MELPHALAN. [Suspect]
     Active Substance: MELPHALAN
     Indication: PLASMA CELL MYELOMA
     Dosage: 100 MG/M2, PER CHEMO REGIM
     Route: 042
     Dates: start: 20170303
  2. CARFILZOMIB [Suspect]
     Active Substance: CARFILZOMIB
     Indication: PLASMA CELL MYELOMA
     Dosage: 56 MG/M2, PER CHEMO REGIM
     Route: 042
     Dates: start: 20170301

REACTIONS (5)
  - Dehydration [Unknown]
  - Febrile neutropenia [Unknown]
  - Hypertension [Unknown]
  - Hypophosphataemia [Unknown]
  - Mucosal inflammation [Unknown]

NARRATIVE: CASE EVENT DATE: 20170315
